FAERS Safety Report 9157080 (Version 2)
Quarter: 2013Q1

REPORT INFORMATION
  Report Type: Spontaneous
  Country: US (occurrence: None)
  Receive Date: 20130206
  Receipt Date: 20130226
  Transmission Date: 20140127
  Serious: Yes (Hospitalization)
  Sender: FDA-Public Use
  Company Number: 2013PL000024

PATIENT
  Sex: Female

DRUGS (9)
  1. LOTRONEX [Suspect]
     Indication: PRODUCT USED FOR UNKNOWN INDICATION
     Dates: end: 201210
  2. PREVACID [Concomitant]
  3. CLONAZEPAM [Concomitant]
  4. MULTIVITAMIN [Concomitant]
  5. CALCIUM [Concomitant]
  6. ZYRTEC [Concomitant]
  7. VIVELLE DOT [Concomitant]
  8. CO Q 10 [Concomitant]
  9. VITAMIN D [Concomitant]

REACTIONS (7)
  - Haemorrhage [None]
  - Colitis ischaemic [None]
  - Enterocolitis infectious [None]
  - Blood potassium decreased [None]
  - Blood glucose increased [None]
  - Blood calcium decreased [None]
  - Alanine aminotransferase increased [None]
